FAERS Safety Report 12602998 (Version 1)
Quarter: 2016Q3

REPORT INFORMATION
  Report Type: Spontaneous
  Country: BR (occurrence: BR)
  Receive Date: 20160728
  Receipt Date: 20160728
  Transmission Date: 20161109
  Serious: Yes (Death)
  Sender: FDA-Public Use
  Company Number: BR-PFIZER INC-2016358203

PATIENT
  Sex: Female

DRUGS (1)
  1. LORAX [Suspect]
     Active Substance: LORAZEPAM
     Dosage: 2 MG, UNK

REACTIONS (1)
  - Death [Fatal]
